FAERS Safety Report 8503674 (Version 2)
Quarter: 2012Q4

REPORT INFORMATION
  Report Type: 
  Country: US (occurrence: US)
  Receive Date: 20120411
  Receipt Date: 20121113
  Transmission Date: 20130627
  Serious: Yes (Death)
  Sender: FDA-Public Use
  Company Number: US-CELGENEUS-163-21660-12040764

PATIENT
  Sex: Female

DRUGS (1)
  1. ABRAXANE [Suspect]
     Indication: METASTATIC BREAST CANCER
     Route: 041
     Dates: start: 20120403, end: 201204

REACTIONS (1)
  - Breast cancer metastatic [Fatal]
